FAERS Safety Report 8159086-3 (Version None)
Quarter: 2012Q1

REPORT INFORMATION
  Report Type: 
  Country: None (occurrence: None)
  Receive Date: 20120217
  Receipt Date: 20120210
  Transmission Date: 20120608
  Serious: Yes (Life-Threatening, Hospitalization)
  Sender: FDA-Public Use
  Company Number: CPI-016-05

PATIENT
  Sex: Male
  Weight: 110.5 kg

DRUGS (1)
  1. CALDOLOR [Suspect]
     Indication: PAIN
     Dosage: 800 MG X 1 IV
     Route: 042
     Dates: start: 20120209, end: 20120209

REACTIONS (2)
  - POST PROCEDURAL COMPLICATION [None]
  - LARYNGOSPASM [None]
